FAERS Safety Report 8619486-1 (Version None)
Quarter: 2012Q3

REPORT INFORMATION
  Report Type: 
  Country: None (occurrence: None)
  Receive Date: 20120824
  Receipt Date: 20120818
  Transmission Date: 20120928
  Serious: Yes (Other)
  Sender: FDA-Public Use
  Company Number: US-AMGEN-USASP2012052915

PATIENT
  Age: 67 Year
  Sex: Female

DRUGS (3)
  1. ENBREL [Suspect]
     Indication: RHEUMATOID ARTHRITIS
     Dosage: 50 UNK, QWK
     Route: 058
  2. METHOTREXATE [Concomitant]
     Dosage: 10 MG, QWK
     Route: 048
  3. PREDNISONE TAB [Concomitant]

REACTIONS (7)
  - SKIN DISORDER [None]
  - PRURITUS GENERALISED [None]
  - SKIN HAEMORRHAGE [None]
  - DECREASED APPETITE [None]
  - HYPERHIDROSIS [None]
  - ERYTHEMA [None]
  - URINARY TRACT INFECTION [None]
